FAERS Safety Report 10408924 (Version 1)
Quarter: 2014Q3

REPORT INFORMATION
  Report Type: Spontaneous
  Country: US (occurrence: None)
  Receive Date: 20140825
  Receipt Date: 20140825
  Transmission Date: 20150326
  Serious: No
  Sender: FDA-Public Use
  Company Number: None

PATIENT
  Sex: Female
  Weight: 62.6 kg

DRUGS (1)
  1. ENBREL [Suspect]
     Active Substance: ETANERCEPT
     Indication: RHEUMATOID ARTHRITIS
     Dosage: 50 MG INJECTABLE WEEKLY, SUBCUANEOUS
     Route: 058
     Dates: start: 201405, end: 20140816

REACTIONS (1)
  - Treatment failure [None]

NARRATIVE: CASE EVENT DATE: 20140816
